FAERS Safety Report 6220624-9 (Version None)
Quarter: 2009Q2

REPORT INFORMATION
  Report Type: 
  Country: None (occurrence: None)
  Receive Date: 20090610
  Receipt Date: 20090527
  Transmission Date: 20091009
  Serious: No
  Sender: FDA-Public Use
  Company Number: AU-ROCHE-635073

PATIENT
  Sex: Female

DRUGS (2)
  1. TAMIFLU [Suspect]
     Indication: DRUG USE FOR UNKNOWN INDICATION
     Route: 065
  2. TAMIFLU [Suspect]
     Dosage: DOUBLE DOSE
     Route: 065

REACTIONS (2)
  - NO ADVERSE EVENT [None]
  - PREGNANCY [None]
